FAERS Safety Report 6048912-X (Version None)
Quarter: 2009Q1

REPORT INFORMATION
  Report Type: 
  Country: None (occurrence: None)
  Receive Date: 20090123
  Receipt Date: 20090115
  Transmission Date: 20090719
  Serious: Yes (Hospitalization)
  Sender: FDA-Public Use
  Company Number: GB-ABBOTT-09P-167-0498957-00

PATIENT
  Age: 72 Year
  Sex: Female

DRUGS (20)
  1. LEVOTHYROXINE [Suspect]
     Indication: HYPOTHYROIDISM
     Route: 048
  2. LEVOTHYROXINE [Suspect]
     Indication: MIGRAINE
  3. WARFARIN [Suspect]
     Indication: DEEP VEIN THROMBOSIS
     Route: 048
  4. WARFARIN [Suspect]
     Indication: MIGRAINE
  5. PANTOPRAZOLE SODIUM [Suspect]
     Indication: MIGRAINE
     Route: 048
  6. CARBAMAZEPINE [Suspect]
     Indication: EPILEPSY
     Route: 048
  7. ANADIN [Suspect]
     Indication: MIGRAINE
     Route: 048
  8. ALENDRONIC ACID [Suspect]
     Indication: OSTEOARTHRITIS
     Route: 048
  9. CALCICHEW [Suspect]
     Indication: OSTEOARTHRITIS
     Route: 048
  10. CODEINE PHOSPHATE [Suspect]
     Indication: MIGRAINE
     Route: 048
  11. CODEINE PHOSPHATE [Suspect]
  12. GAVISCON [Suspect]
     Indication: MIGRAINE
     Route: 048
  13. RISEDRONATE SODIUM [Suspect]
     Indication: OSTEOARTHRITIS
     Route: 048
  14. RISEDRONATE SODIUM [Suspect]
     Indication: MIGRAINE
  15. SERETIDE [Suspect]
     Indication: ASTHMA
     Route: 055
  16. SERETIDE [Suspect]
     Indication: MIGRAINE
  17. VENTOLIN [Suspect]
     Indication: ASTHMA
     Route: 055
  18. VENTOLIN [Suspect]
     Indication: MIGRAINE
  19. ZOLMITRIPTAN [Suspect]
     Indication: MIGRAINE
     Route: 048
  20. ZOLMITRIPTAN [Suspect]

REACTIONS (1)
  - CEREBROVASCULAR ACCIDENT [None]
